FAERS Safety Report 8599554-3 (Version None)
Quarter: 2012Q3

REPORT INFORMATION
  Report Type: 
  Country: None (occurrence: None)
  Receive Date: 20120816
  Receipt Date: 20111102
  Transmission Date: 20120928
  Serious: No
  Sender: FDA-Public Use
  Company Number: US-MYLANLABS-2011S1022848

PATIENT
  Sex: Male

DRUGS (3)
  1. ELAVIL [Concomitant]
     Indication: NEURALGIA
     Route: 048
     Dates: start: 20110701, end: 20110901
  2. SYNTHROID [Concomitant]
     Indication: HYPOTHYROIDISM
     Route: 048
     Dates: start: 20000101
  3. MELOXICAM [Suspect]
     Indication: INFLAMMATION
     Route: 048
     Dates: start: 20110801, end: 20110901

REACTIONS (1)
  - PARAESTHESIA [None]
